FAERS Safety Report 8520347-7 (Version None)
Quarter: 2012Q3

REPORT INFORMATION
  Report Type: 
  Country: None (occurrence: None)
  Receive Date: 20120719
  Receipt Date: 20120711
  Transmission Date: 20120928
  Serious: Yes (Hospitalization)
  Sender: FDA-Public Use
  Company Number: US-COVIDIEN/TYCO HEALTHCARE/MALLINCKRODT-T201202798

PATIENT
  Age: 41 Year
  Sex: Female

DRUGS (10)
  1. FENTANYL CITRATE [Suspect]
     Indication: ANALGESIC THERAPY
  2. SUCCINYLCHOLINE CHLORIDE [Concomitant]
     Indication: ENDOTRACHEAL INTUBATION
     Dosage: UNK
  3. FENTANYL CITRATE [Suspect]
     Indication: SEDATION
     Dosage: 100 UG/HR, HR
     Route: 042
  4. 3,4-METHYLENEDIOXYPYROVALERONE (BLUE MAGIC BATH SALTS) [Suspect]
  5. LORAZEPAM [Concomitant]
     Indication: AGITATION
     Dosage: 2 MG, SINGLE
  6. DIAZEPAM [Concomitant]
     Dosage: 5 MG, UNK
  7. PROPOFOL [Concomitant]
     Indication: SEDATION
     Dosage: UNK
  8. MIDAZOLAM [Concomitant]
     Indication: SEDATION
     Dosage: UNK
  9. LORAZEPAM [Concomitant]
     Indication: CONFUSIONAL STATE
     Dosage: 13 MG, UNK
  10. ETOMIDATE [Concomitant]
     Indication: ENDOTRACHEAL INTUBATION

REACTIONS (4)
  - PNEUMONIA ASPIRATION [None]
  - PNEUMOTHORAX [None]
  - SEROTONIN SYNDROME [None]
  - BACTERAEMIA [None]
